FAERS Safety Report 15599745 (Version 10)
Quarter: 2020Q3

REPORT INFORMATION
  Report Type: Spontaneous
  Country: US (occurrence: US)
  Receive Date: 20181108
  Receipt Date: 20200727
  Transmission Date: 20201102
  Serious: Yes (Hospitalization)
  Sender: FDA-Public Use
  Company Number: US-ACTELION-A-NJ2018-181309

PATIENT
  Age: 62 Year
  Sex: Female
  Weight: 66.67 kg

DRUGS (4)
  1. TADALAFIL. [Concomitant]
     Active Substance: TADALAFIL
  2. FERROUS SULFATE. [Concomitant]
     Active Substance: FERROUS SULFATE
  3. OPSUMIT [Suspect]
     Active Substance: MACITENTAN
     Indication: PULMONARY ARTERIAL HYPERTENSION
     Dosage: 10 MG, QD
     Route: 048
  4. OPSUMIT [Suspect]
     Active Substance: MACITENTAN
     Dosage: 10 MG, QD
     Route: 048

REACTIONS (10)
  - Musculoskeletal discomfort [Not Recovered/Not Resolved]
  - Upper-airway cough syndrome [Unknown]
  - Nasopharyngitis [Unknown]
  - Tooth extraction [Unknown]
  - Urinary tract infection [Unknown]
  - Discharge [Unknown]
  - Rash vesicular [Unknown]
  - Cough [Unknown]
  - Hip arthroplasty [Unknown]
  - Anaemia [Unknown]

NARRATIVE: CASE EVENT DATE: 20181121
